FAERS Safety Report 5214308-3 (Version None)
Quarter: 2007Q1

REPORT INFORMATION
  Report Type: 
  Country: None (occurrence: None)
  Receive Date: 20070122
  Receipt Date: 20070108
  Transmission Date: 20070707
  Serious: Yes (Other)
  Sender: FDA-Public Use
  Company Number: RO-MERCK-0701HUN00003

PATIENT
  Age: 70 Year
  Sex: Female

DRUGS (2)
  1. TIMOPTIC [Suspect]
     Indication: OPEN ANGLE GLAUCOMA
     Route: 047
  2. LATANOPROST [Suspect]
     Indication: OPEN ANGLE GLAUCOMA
     Route: 047

REACTIONS (1)
  - DRUG INEFFECTIVE [None]
